FAERS Safety Report 18594552 (Version 1)
Quarter: 2020Q4

REPORT INFORMATION
  Report Type: Spontaneous
  Country: US (occurrence: US)
  Receive Date: 20201028
  Receipt Date: 20201028
  Transmission Date: 20210114
  Serious: Yes (Death)
  Sender: FDA-Public Use
  Company Number: None

PATIENT
  Age: 8 Decade
  Sex: Female

DRUGS (1)
  1. LERONLIMAB. [Suspect]
     Active Substance: LERONLIMAB
     Indication: COVID-19
     Route: 058

REACTIONS (2)
  - Off label use [None]
  - Respiratory failure [None]
